FAERS Safety Report 15880622 (Version 1)
Quarter: 2019Q1

REPORT INFORMATION
  Report Type: Report from Study
  Country: ES (occurrence: ES)
  Receive Date: 20190128
  Receipt Date: 20190128
  Transmission Date: 20190417
  Serious: Yes (Hospitalization)
  Sender: FDA-Public Use
  Company Number: ES-MYLANLABS-2019M1006569

PATIENT
  Age: 66 Year
  Sex: Female

DRUGS (5)
  1. TRANKIMAZIN [Interacting]
     Active Substance: ALPRAZOLAM
     Indication: INSOMNIA
     Dosage: 0.5 MILLIGRAM, QD
     Route: 048
     Dates: start: 20110921, end: 20171210
  2. PARACETAMOL/TRAMADOL/TRAMADOL HYDROCHLORIDE [Interacting]
     Active Substance: ACETAMINOPHEN\TRAMADOL HYDROCHLORIDE
     Indication: MONONEUROPATHY
     Dosage: 1 DOSAGE FORM, QD
     Route: 048
     Dates: start: 20171115, end: 20171210
  3. ORFIDAL [Interacting]
     Active Substance: LORAZEPAM
     Indication: INSOMNIA
     Dosage: 2 MILLIGRAM, QD
     Route: 048
     Dates: start: 20110921, end: 20171210
  4. FENTANYL. [Suspect]
     Active Substance: FENTANYL
     Indication: MONONEUROPATHY
     Dosage: 16 MICROGRAM, QD
     Route: 062
     Dates: start: 20171115, end: 20171210
  5. CITALOPRAM [Interacting]
     Active Substance: CITALOPRAM HYDROBROMIDE
     Indication: DEPRESSION
     Dosage: 20 MILLIGRAM, QD
     Route: 048
     Dates: start: 20150319, end: 20171210

REACTIONS (2)
  - Drug interaction [Unknown]
  - Depressed level of consciousness [Recovered/Resolved]

NARRATIVE: CASE EVENT DATE: 20171207
